FAERS Safety Report 5959271-2 (Version None)
Quarter: 2008Q4

REPORT INFORMATION
  Report Type: 
  Country: None (occurrence: None)
  Receive Date: 20081120
  Receipt Date: 20081111
  Transmission Date: 20090506
  Serious: Yes (Other)
  Sender: FDA-Public Use
  Company Number: US-WYE-H06810608

PATIENT
  Age: 82 Year
  Sex: Female

DRUGS (7)
  1. TYGACIL [Suspect]
     Indication: CELLULITIS
     Route: 042
     Dates: start: 20081030, end: 20081104
  2. AMIODARONE HCL [Concomitant]
  3. LASIX [Concomitant]
  4. ACETYLSALICYLIC ACID SRT [Concomitant]
  5. PAXIL [Concomitant]
  6. CLINDAMYCIN HCL [Concomitant]
  7. ARMOUR THYROID [Concomitant]
     Dosage: 1 GRAIN

REACTIONS (4)
  - BODY TEMPERATURE DECREASED [None]
  - HYPERINSULINAEMIA [None]
  - HYPOGLYCAEMIA [None]
  - HYPOKALAEMIA [None]
